FAERS Safety Report 9591898 (Version 2)
Quarter: 2013Q4

REPORT INFORMATION
  Report Type: Spontaneous
  Country: US (occurrence: US)
  Receive Date: 20131004
  Receipt Date: 20131004
  Transmission Date: 20140711
  Serious: No
  Sender: FDA-Public Use
  Company Number: US-AMGEN-USASP2012070934

PATIENT
  Sex: Female

DRUGS (7)
  1. ENBREL [Suspect]
     Indication: RHEUMATOID ARTHRITIS
     Dosage: UNK
     Dates: start: 20110421
  2. LYRICA [Concomitant]
     Dosage: UNK
  3. ETODOLAC [Concomitant]
     Dosage: UNK
  4. FLEXERIL                           /00428402/ [Concomitant]
     Dosage: UNK
  5. TRAMADOL [Concomitant]
     Dosage: UNK
  6. PREDNISONE [Concomitant]
  7. IMURAN                             /00001501/ [Concomitant]
     Dosage: UNK

REACTIONS (5)
  - Malaise [Not Recovered/Not Resolved]
  - Productive cough [Unknown]
  - Therapeutic response decreased [Unknown]
  - Nasopharyngitis [Unknown]
  - Infection [Not Recovered/Not Resolved]
